FAERS Safety Report 7716728-1 (Version None)
Quarter: 2011Q3

REPORT INFORMATION
  Report Type: 
  Country: None (occurrence: None)
  Receive Date: 20110829
  Receipt Date: 20110825
  Transmission Date: 20111222
  Serious: Yes (Other)
  Sender: FDA-Public Use
  Company Number: IT-BAYER-2011-077169

PATIENT
  Age: 71 Year
  Sex: Female

DRUGS (4)
  1. LAEVOLAC EPS [Concomitant]
     Indication: HEPATITIS C
  2. CIPROFLAXACIN [Suspect]
     Indication: TOOTH INFECTION
     Dosage: 500 MG, BID
     Route: 048
     Dates: start: 20110822
  3. OMEGA-3-ACID ETHYL ESTERS [Concomitant]
     Indication: MYOCARDIAL ISCHAEMIA
     Route: 048
  4. LAEVOLAC EPS [Concomitant]
     Indication: HEPATIC CIRRHOSIS
     Route: 048

REACTIONS (2)
  - ARRHYTHMIA [None]
  - LOSS OF CONSCIOUSNESS [None]
